FAERS Safety Report 5819235-6 (Version None)
Quarter: 2008Q3

REPORT INFORMATION
  Report Type: 
  Country: None (occurrence: None)
  Receive Date: 20080721
  Receipt Date: 20080721
  Transmission Date: 20090109
  Serious: Yes (Death)
  Sender: FDA-Public Use
  Company Number: None

PATIENT
  Age: 43 Year
  Sex: Male
  Weight: 65.7716 kg

DRUGS (1)
  1. SINEQUAN [Suspect]
     Indication: ANXIETY
     Dates: start: 20040101, end: 20080525

REACTIONS (5)
  - ALCOHOL POISONING [None]
  - CARDIOMEGALY [None]
  - DRUG LEVEL INCREASED [None]
  - DRUG TOXICITY [None]
  - LEFT VENTRICULAR HYPERTROPHY [None]
